FAERS Safety Report 8397944-5 (Version None)
Quarter: 2012Q2

REPORT INFORMATION
  Report Type: 
  Country: None (occurrence: None)
  Receive Date: 20120531
  Receipt Date: 20120522
  Transmission Date: 20120825
  Serious: Yes (Other)
  Sender: FDA-Public Use
  Company Number: JP-JNJFOC-20120300677

PATIENT
  Sex: Female
  Weight: 33 kg

DRUGS (8)
  1. STELARA [Suspect]
     Indication: PSORIASIS
     Route: 058
     Dates: start: 20111129
  2. STELARA [Suspect]
     Route: 058
     Dates: start: 20110805
  3. OXAROL [Concomitant]
     Indication: PSORIASIS
     Route: 061
  4. STELARA [Suspect]
     Route: 058
     Dates: start: 20110906
  5. FULMETA [Concomitant]
     Indication: PSORIASIS
     Route: 061
  6. STELARA [Suspect]
     Route: 058
     Dates: start: 20120313
  7. HYDROCORTISONE BUTYRATE [Concomitant]
     Indication: PSORIASIS
     Route: 061
  8. HEPARIN [Concomitant]
     Indication: PSORIASIS
     Route: 061

REACTIONS (1)
  - IRON DEFICIENCY ANAEMIA [None]
